FAERS Safety Report 8932547 (Version 1)
Quarter: 2012Q4

REPORT INFORMATION
  Report Type: Spontaneous
  Country: US (occurrence: None)
  Receive Date: 20121126
  Receipt Date: 20121126
  Transmission Date: 20130627
  Serious: Yes (Hospitalization)
  Sender: FDA-Public Use
  Company Number: None

PATIENT
  Age: 62 Year
  Sex: Male

DRUGS (2)
  1. AMPYRA 10MG TAB ACORDA THERAPEUTICS [Suspect]
     Indication: MS
     Dosage: 10mg BID PO
     Route: 048
     Dates: start: 2010, end: 2012
  2. AMPYRA 10MG TAB ACORDA THERAPEUTICS [Suspect]
     Dosage: 10mg BID PO
     Route: 048
     Dates: start: 2010, end: 2012

REACTIONS (1)
  - Convulsion [None]
